FAERS Safety Report 14124075 (Version 1)
Quarter: 2017Q4

REPORT INFORMATION
  Report Type: Spontaneous
  Country: JO (occurrence: JO)
  Receive Date: 20171025
  Receipt Date: 20171025
  Transmission Date: 20180321
  Serious: Yes (Hospitalization)
  Sender: FDA-Public Use
  Company Number: JO-ASTRAZENECA-2017SF07377

PATIENT
  Age: 60 Year
  Sex: Male
  Weight: 72 kg

DRUGS (7)
  1. VASTERAL [Concomitant]
  2. CONCOR [Concomitant]
     Active Substance: BISOPROLOL FUMARATE
  3. NEXIUM [Concomitant]
     Active Substance: ESOMEPRAZOLE MAGNESIUM
  4. LIPITOR [Concomitant]
     Active Substance: ATORVASTATIN CALCIUM
  5. CLEXAN [Concomitant]
     Active Substance: ENOXAPARIN SODIUM
  6. BRILINTA [Suspect]
     Active Substance: TICAGRELOR
     Indication: ACUTE CORONARY SYNDROME
     Route: 048
     Dates: start: 20171009, end: 20171014
  7. ASPIRIN. [Concomitant]
     Active Substance: ASPIRIN

REACTIONS (1)
  - Pneumonitis [Recovered/Resolved]

NARRATIVE: CASE EVENT DATE: 20171011
